FAERS Safety Report 9686769 (Version 1)
Quarter: 2013Q4

REPORT INFORMATION
  Report Type: Spontaneous
  Country: BR (occurrence: BR)
  Receive Date: 20131113
  Receipt Date: 20131113
  Transmission Date: 20140711
  Serious: Yes (Other)
  Sender: FDA-Public Use
  Company Number: BR-PFIZER INC-2013322049

PATIENT
  Age: 82 Year
  Sex: Female
  Weight: 72 kg

DRUGS (3)
  1. LYRICA [Suspect]
     Indication: OSTEOARTHRITIS
     Dosage: UNSPECIFIED DOSE, 1X/DAY
     Route: 048
     Dates: start: 20071111, end: 2007
  2. LYRICA [Suspect]
     Indication: EXOSTOSIS
  3. LYRICA [Suspect]
     Indication: SPINAL PAIN

REACTIONS (3)
  - Off label use [Recovered/Resolved]
  - Corneal disorder [Unknown]
  - Pain [Unknown]
